FAERS Safety Report 20233263 (Version 1)
Quarter: 2021Q4

REPORT INFORMATION
  Report Type: Spontaneous
  Country: FR (occurrence: FR)
  Receive Date: 20211227
  Receipt Date: 20211227
  Transmission Date: 20220303
  Serious: Yes (Other)
  Sender: FDA-Public Use
  Company Number: FR-NOVARTISPH-NVSC2021FR295999

PATIENT
  Age: 69 Year
  Sex: Male

DRUGS (1)
  1. DABRAFENIB [Suspect]
     Active Substance: DABRAFENIB
     Indication: Erdheim-Chester disease
     Dosage: 50 MG, QD
     Route: 065

REACTIONS (2)
  - Pancreatitis relapsing [Unknown]
  - Product use in unapproved indication [Unknown]
